FAERS Safety Report 6942786-8 (Version None)
Quarter: 2010Q3

REPORT INFORMATION
  Report Type: 
  Country: None (occurrence: None)
  Receive Date: 20100824
  Receipt Date: 20100824
  Transmission Date: 20110219
  Serious: Yes (Hospitalization)
  Sender: FDA-Public Use
  Company Number: None

PATIENT
  Age: 52 Year
  Sex: Male
  Weight: 66 kg

DRUGS (2)
  1. OCTAGAM [Suspect]
     Indication: MYASTHENIA GRAVIS
     Dosage: 85GM Q24HX2 Q6 WEEKS IV DRIP
     Route: 041
     Dates: start: 20100612, end: 20100612
  2. OCTAGAM [Suspect]

REACTIONS (3)
  - CORONARY ARTERY OCCLUSION [None]
  - INFUSION RELATED REACTION [None]
  - MYOCARDIAL INFARCTION [None]
